FAERS Safety Report 13012839 (Version 1)
Quarter: 2016Q4

REPORT INFORMATION
  Report Type: Spontaneous
  Country: US (occurrence: US)
  Receive Date: 20161209
  Receipt Date: 20161209
  Transmission Date: 20170207
  Serious: Yes (Hospitalization, Other)
  Sender: FDA-Public Use
  Company Number: US-PFIZER INC-2016563721

PATIENT
  Age: 68 Year
  Sex: Male

DRUGS (4)
  1. DEPO-MEDROL [Suspect]
     Active Substance: METHYLPREDNISOLONE ACETATE
     Indication: MUSCULOSKELETAL PAIN
     Dosage: 40 MG, SINGLE (ONE INJECTION TIMES ONE)
     Dates: start: 20160320
  2. BUPIVACAINE HCL [Suspect]
     Active Substance: BUPIVACAINE HYDROCHLORIDE
     Indication: ANAESTHESIA
     Dosage: 30 ML, SINGLE (ONE TIME INJECTION)
  3. DEPO-MEDROL [Suspect]
     Active Substance: METHYLPREDNISOLONE ACETATE
     Indication: TENDONITIS
  4. DEPO-MEDROL [Suspect]
     Active Substance: METHYLPREDNISOLONE ACETATE
     Indication: MYOCARDIAL INFARCTION

REACTIONS (14)
  - Bacteraemia [Recovering/Resolving]
  - Soft tissue infection [Recovering/Resolving]
  - Myositis [Unknown]
  - Swelling [Recovering/Resolving]
  - Pain [Recovering/Resolving]
  - Sepsis [Recovering/Resolving]
  - Skin infection [Recovering/Resolving]
  - Necrotising fasciitis [Recovering/Resolving]
  - Drug ineffective [Recovering/Resolving]
  - Pyrexia [Recovering/Resolving]
  - Abscess [Recovering/Resolving]
  - Injection site infection [Recovering/Resolving]
  - Skin lesion [Recovering/Resolving]
  - Erythema [Recovering/Resolving]

NARRATIVE: CASE EVENT DATE: 20160325
